FAERS Safety Report 9787475 (Version 2)
Quarter: 2014Q2

REPORT INFORMATION
  Report Type: Spontaneous
  Country: FR (occurrence: FR)
  Receive Date: 20131230
  Receipt Date: 20140402
  Transmission Date: 20141212
  Serious: Yes (Hospitalization)
  Sender: FDA-Public Use
  Company Number: FR-009507513-1312FRA008913

PATIENT
  Age: 61 Year
  Sex: Female

DRUGS (11)
  1. TIENAM 500MG/500MG, POUDRE POUR PERFUSION [Suspect]
     Dosage: 4 DF, QD (1, 4 PER DAY)
     Route: 042
     Dates: start: 20131117, end: 20131120
  2. TAVANIC [Suspect]
     Dosage: 500 MG, BID
     Route: 042
     Dates: start: 20131117, end: 20131120
  3. DIAMOX [Suspect]
     Dosage: 4 DF, QD (1, 4 PER DAY)
     Route: 042
     Dates: start: 20131117, end: 20131121
  4. PERFALGAN [Suspect]
     Dosage: 4 G, QD (1G, 4 PER DAY)
     Route: 042
     Dates: start: 20131117, end: 20131120
  5. DIFFU-K [Suspect]
     Dosage: 2 DF, QD
     Route: 048
     Dates: start: 20131117, end: 20131122
  6. ATROPINE [Suspect]
     Dosage: 1 DROP, QD
     Route: 031
     Dates: start: 20131113, end: 20131121
  7. CELLUVISC [Concomitant]
     Dosage: 4 DF, QD (1 DROP, 4 TIMES A DAY)
     Route: 031
     Dates: start: 20131113
  8. CHIBRO-CADRON [Concomitant]
     Dosage: 4 DF, QD (1 DROP, 4 TIMES A DAY)
     Route: 031
     Dates: start: 20131113
  9. OCUFEN [Concomitant]
     Dosage: 4 DF, QD (1 DROP , 4 TIMES A DAY)
     Route: 031
     Dates: start: 20131113
  10. STAGID [Concomitant]
     Dosage: 0.5 DF, TID
     Route: 048
  11. APROVEL [Concomitant]
     Dosage: 1 DF, QD
     Route: 048

REACTIONS (1)
  - Acute generalised exanthematous pustulosis [Recovered/Resolved with Sequelae]
